FAERS Safety Report 7022984-8 (Version None)
Quarter: 2010Q3

REPORT INFORMATION
  Report Type: 
  Country: None (occurrence: None)
  Receive Date: 20100930
  Receipt Date: 20100928
  Transmission Date: 20110219
  Serious: Yes (Hospitalization)
  Sender: FDA-Public Use
  Company Number: IT-BRISTOL-MYERS SQUIBB COMPANY-15292956

PATIENT
  Age: 80 Year
  Sex: Male

DRUGS (5)
  1. COUMADIN [Suspect]
     Indication: ATRIAL FIBRILLATION
     Dosage: 1 DF = 1 POSOLOGICAL UNIT
     Dates: start: 20010101, end: 20100910
  2. MEDROL [Concomitant]
  3. LASIX [Concomitant]
  4. ATARAX [Concomitant]
  5. PARIET [Concomitant]

REACTIONS (5)
  - ANAEMIA [None]
  - BLADDER OBSTRUCTION [None]
  - HAEMATURIA [None]
  - RENAL FAILURE ACUTE [None]
  - URINARY BLADDER HAEMORRHAGE [None]
